FAERS Safety Report 9802967 (Version 1)
Quarter: 2014Q1

REPORT INFORMATION
  Report Type: Spontaneous
  Country: US (occurrence: None)
  Receive Date: 20140106
  Receipt Date: 20140106
  Transmission Date: 20141002
  Serious: Yes (Disabling)
  Sender: FDA-Public Use
  Company Number: None

PATIENT
  Age: 21 Year
  Sex: Male
  Weight: 95.26 kg

DRUGS (1)
  1. CLONAZEPAM [Suspect]
     Indication: GENERALISED ANXIETY DISORDER
     Dosage: 2 PILLS
     Route: 048
     Dates: start: 20130601, end: 20140103

REACTIONS (6)
  - Withdrawal syndrome [None]
  - Tremor [None]
  - Decreased appetite [None]
  - Vision blurred [None]
  - Amnesia [None]
  - Depression [None]
